FAERS Safety Report 12211893 (Version 1)
Quarter: 2016Q1

REPORT INFORMATION
  Report Type: Report from Study
  Country: CO (occurrence: CO)
  Receive Date: 20160325
  Receipt Date: 20160325
  Transmission Date: 20160526
  Serious: Yes (Death)
  Sender: FDA-Public Use
  Company Number: CO-ABBVIE-16K-036-1590394-00

PATIENT
  Age: 53 Year
  Sex: Female

DRUGS (1)
  1. HUMIRA [Suspect]
     Active Substance: ADALIMUMAB
     Indication: PSORIASIS
     Route: 058
     Dates: start: 20131226, end: 20150917

REACTIONS (6)
  - Cardio-respiratory arrest [Fatal]
  - Headache [Fatal]
  - Dyspnoea [Fatal]
  - Hyperhidrosis [Fatal]
  - Asthenia [Fatal]
  - Abdominal pain lower [Fatal]

NARRATIVE: CASE EVENT DATE: 20160302
